FAERS Safety Report 8161545-4 (Version None)
Quarter: 2012Q1

REPORT INFORMATION
  Report Type: 
  Country: None (occurrence: None)
  Receive Date: 20120222
  Receipt Date: 20120222
  Transmission Date: 20120608
  Serious: Yes (Other)
  Sender: FDA-Public Use
  Company Number: None

PATIENT
  Age: 62 Year
  Sex: Male
  Weight: 74.8435 kg

DRUGS (1)
  1. PRILOSEC [Suspect]
     Indication: GASTROOESOPHAGEAL REFLUX DISEASE
     Dosage: 20 MG DAILY 3 TO 4 MONTHS

REACTIONS (5)
  - GAIT DISTURBANCE [None]
  - DRUG WITHDRAWAL SYNDROME [None]
  - NECK PAIN [None]
  - VISUAL IMPAIRMENT [None]
  - HYPERHIDROSIS [None]
